FAERS Safety Report 6918515-0 (Version None)
Quarter: 2010Q3

REPORT INFORMATION
  Report Type: 
  Country: None (occurrence: None)
  Receive Date: 20100811
  Receipt Date: 20100731
  Transmission Date: 20110219
  Serious: Yes (Hospitalization, Other)
  Sender: FDA-Public Use
  Company Number: GB-NOVOPROD-311336

PATIENT
  Sex: Female

DRUGS (6)
  1. LEVEMIR [Suspect]
     Indication: GESTATIONAL DIABETES
     Route: 058
  2. INSULATARD [Suspect]
     Indication: GESTATIONAL DIABETES
     Dosage: 18 IU, QD  (12 + 6)
     Route: 058
  3. INSULATARD [Suspect]
     Dosage: UNK
     Route: 058
  4. NOVOMIX 30 [Suspect]
     Indication: GESTATIONAL DIABETES
     Route: 058
  5. NOVORAPID [Suspect]
     Indication: GESTATIONAL DIABETES
     Dosage: 4 IU, TID (4+4+4 TO 6)
     Route: 058
  6. NOVORAPID [Suspect]
     Dosage: UNK
     Route: 058

REACTIONS (5)
  - BLOOD GLUCOSE INCREASED [None]
  - CAESAREAN SECTION [None]
  - DIABETIC KETOACIDOSIS [None]
  - DRUG EXPOSURE DURING PREGNANCY [None]
  - INJECTION SITE REACTION [None]
